FAERS Safety Report 7799476-1 (Version None)
Quarter: 2011Q4

REPORT INFORMATION
  Report Type: 
  Country: None (occurrence: None)
  Receive Date: 20111006
  Receipt Date: 20110930
  Transmission Date: 20120403
  Serious: Yes (Life-Threatening, Hospitalization)
  Sender: FDA-Public Use
  Company Number: PHHY2011DE81818

PATIENT

DRUGS (12)
  1. AMITRIPTYLINE HCL [Concomitant]
     Dosage: 1 DF, QD
     Route: 048
  2. LYRICA [Concomitant]
     Dosage: 1 DF, QD
     Route: 048
  3. MORFINE [Concomitant]
     Dosage: 1 DF, BID
     Route: 048
     Dates: start: 20060101
  4. SIMVASTATIN [Concomitant]
     Dosage: 1 DF, QD
     Route: 048
  5. RASILEZ [Suspect]
     Indication: HYPERTENSION
     Dosage: 1 DF, QD
     Route: 048
     Dates: start: 20110607, end: 20110801
  6. AMLODIPINE [Concomitant]
     Dosage: UNK DF, BID
  7. TEVETEN [Concomitant]
     Indication: HYPERTONIA
     Dosage: 1 DF, QD
     Route: 048
  8. TETRAZETS [Concomitant]
     Indication: PAIN
     Dosage: 1 DF, QD
     Route: 048
  9. LEVOTHYROXINE SODIUM [Concomitant]
     Dosage: 1 DF, QD
     Route: 048
  10. RANITIDINE HCL [Concomitant]
     Dosage: 1 DF, QD
     Route: 048
  11. BETA BLOCKING AGENTS [Concomitant]
     Dosage: UNK
  12. METOPROLOL TARTRATE [Concomitant]
     Dosage: 1 DF, BID
     Route: 048

REACTIONS (3)
  - BLOOD CREATININE INCREASED [None]
  - RENAL FAILURE ACUTE [None]
  - CONFUSIONAL STATE [None]
